FAERS Safety Report 25131446 (Version 1)
Quarter: 2025Q1

REPORT INFORMATION
  Report Type: Report from Study
  Country: US (occurrence: US)
  Receive Date: 20250327
  Receipt Date: 20250327
  Transmission Date: 20250409
  Serious: Yes (Hospitalization)
  Sender: UPSHER SMITH LABORATORIES
  Company Number: US-UPSHER-SMITH LABORATORIES, LLC-2024USL00298

PATIENT

DRUGS (3)
  1. VIGADRONE [Suspect]
     Active Substance: VIGABATRIN
     Indication: Infantile spasms
     Dates: start: 20231221
  2. VIGADRONE [Suspect]
     Active Substance: VIGABATRIN
     Route: 045
  3. VIGADRONE [Suspect]
     Active Substance: VIGABATRIN
     Route: 065
     Dates: start: 20231221

REACTIONS (2)
  - Dyspnoea [Not Recovered/Not Resolved]
  - Paranasal sinus hypersecretion [Not Recovered/Not Resolved]
